FAERS Safety Report 6877218-1 (Version None)
Quarter: 2010Q3

REPORT INFORMATION
  Report Type: 
  Country: None (occurrence: None)
  Receive Date: 20100727
  Receipt Date: 20100723
  Transmission Date: 20110219
  Serious: No
  Sender: FDA-Public Use
  Company Number: US-ABBOTT-09P-163-0590336-00

PATIENT
  Sex: Female
  Weight: 63.56 kg

DRUGS (6)
  1. SYNTHROID [Suspect]
     Indication: HYPOTHYROIDISM
     Route: 048
     Dates: start: 20090201
  2. SYNTHROID [Suspect]
     Route: 048
     Dates: end: 20090401
  3. TRICOR [Suspect]
     Indication: BLOOD CHOLESTEROL INCREASED
     Route: 048
     Dates: start: 20030101, end: 20090701
  4. ATENOLOL [Concomitant]
     Indication: HYPERTENSION
  5. MAXZIDE [Concomitant]
     Indication: PRODUCT USED FOR UNKNOWN INDICATION
  6. LUMIGAN [Concomitant]
     Indication: PRODUCT USED FOR UNKNOWN INDICATION

REACTIONS (3)
  - DRUG EFFECT DECREASED [None]
  - HYPERTENSION [None]
  - PAIN [None]
